FAERS Safety Report 8542731-8 (Version None)
Quarter: 2012Q3

REPORT INFORMATION
  Report Type: 
  Country: None (occurrence: None)
  Receive Date: 20120727
  Receipt Date: 20120718
  Transmission Date: 20120928
  Serious: Yes (Hospitalization)
  Sender: FDA-Public Use
  Company Number: JP-BIOGENIDEC-2012BI020785

PATIENT
  Age: 38 Year
  Sex: Male

DRUGS (7)
  1. AVONEX [Suspect]
     Route: 030
     Dates: start: 20081226, end: 20090225
  2. PREDNISOLONE [Concomitant]
     Indication: MULTIPLE SCLEROSIS
     Route: 048
     Dates: start: 20081211
  3. AVONEX [Suspect]
     Route: 030
     Dates: start: 20081219, end: 20081225
  4. AVONEX [Suspect]
     Route: 030
     Dates: start: 20090226, end: 20090401
  5. THREENOFEN [Concomitant]
     Indication: PROPHYLAXIS
     Route: 048
     Dates: start: 20090219, end: 20090223
  6. AVONEX [Suspect]
     Route: 030
     Dates: start: 20090402
  7. AVONEX [Suspect]
     Indication: RELAPSING-REMITTING MULTIPLE SCLEROSIS
     Route: 030
     Dates: start: 20081211, end: 20081218

REACTIONS (2)
  - LIVER FUNCTION TEST ABNORMAL [None]
  - EPIDIDYMITIS [None]
